FAERS Safety Report 6986145-0 (Version None)
Quarter: 2010Q3

REPORT INFORMATION
  Report Type: 
  Country: None (occurrence: None)
  Receive Date: 20100915
  Receipt Date: 20090602
  Transmission Date: 20110219
  Serious: No
  Sender: FDA-Public Use
  Company Number: US-WYE-H09577809

PATIENT
  Sex: Female
  Weight: 89.89 kg

DRUGS (5)
  1. PRISTIQ [Suspect]
     Indication: DEPRESSION
     Route: 048
     Dates: start: 20090528
  2. SYNTHROID [Concomitant]
  3. ATIVAN [Concomitant]
  4. LISINOPRIL AND HYDROCHLOROTHIAZIDE [Concomitant]
  5. BUPROPION HYDROCHLORIDE [Concomitant]

REACTIONS (1)
  - DIZZINESS [None]
